FAERS Safety Report 22968781 (Version 2)
Quarter: 2023Q4

REPORT INFORMATION
  Report Type: Report from Study
  Country: US (occurrence: US)
  Receive Date: 20230922
  Receipt Date: 20231117
  Transmission Date: 20240110
  Serious: Yes (Hospitalization)
  Sender: FDA-Public Use
  Company Number: US-ABBVIE-5411269

PATIENT
  Sex: Male
  Weight: 74 kg

DRUGS (8)
  1. SKYRIZI [Suspect]
     Active Substance: RISANKIZUMAB-RZAA
     Indication: Crohn^s disease
     Route: 058
     Dates: start: 20220112, end: 20230710
  2. SKYRIZI [Suspect]
     Active Substance: RISANKIZUMAB-RZAA
     Route: 058
  3. SKYRIZI [Suspect]
     Active Substance: RISANKIZUMAB-RZAA
     Route: 058
  4. DEXLANSOPRAZOLE [Concomitant]
     Active Substance: DEXLANSOPRAZOLE
     Indication: Gastrooesophageal reflux disease
     Route: 048
     Dates: start: 20161025, end: 20231025
  5. CALCITRIOL [Concomitant]
     Active Substance: CALCITRIOL
     Indication: Blood calcium decreased
     Route: 048
     Dates: start: 20220706, end: 20231025
  6. ATROPINE\DIPHENOXYLATE [Concomitant]
     Active Substance: ATROPINE\DIPHENOXYLATE
     Indication: Diarrhoea
     Dosage: 2.5
     Route: 048
     Dates: start: 20220414, end: 20231025
  7. METHOTREXATE [Concomitant]
     Active Substance: METHOTREXATE
     Indication: Immunosuppressant drug therapy
     Route: 048
     Dates: start: 20220125, end: 20231025
  8. MONTELUKAST [Concomitant]
     Active Substance: MONTELUKAST SODIUM
     Indication: Seasonal allergy
     Route: 048
     Dates: start: 20220221, end: 20231025

REACTIONS (4)
  - Cystitis [Recovering/Resolving]
  - Pyrexia [Recovered/Resolved]
  - Hyperplasia [Unknown]
  - Calculus bladder [Unknown]
